FAERS Safety Report 5685264-9 (Version None)
Quarter: 2008Q1

REPORT INFORMATION
  Report Type: 
  Country: None (occurrence: None)
  Receive Date: 20080328
  Receipt Date: 20080317
  Transmission Date: 20080703
  Serious: Yes (Disabling)
  Sender: FDA-Public Use
  Company Number: GB-PFIZER INC-2008020911

PATIENT
  Sex: Male
  Weight: 91 kg

DRUGS (1)
  1. NEURONTIN [Suspect]
     Indication: NEURALGIA
     Route: 048
     Dates: start: 20061115, end: 20080222

REACTIONS (3)
  - APHONIA [None]
  - TONSILLITIS [None]
  - VOCAL CORD DISORDER [None]
